FAERS Safety Report 7050378-8 (Version None)
Quarter: 2010Q4

REPORT INFORMATION
  Report Type: 
  Country: None (occurrence: None)
  Receive Date: 20101013
  Receipt Date: 20101004
  Transmission Date: 20110411
  Serious: Yes (Other)
  Sender: FDA-Public Use
  Company Number: 2010EU003215

PATIENT
  Age: 31 Year
  Sex: Female

DRUGS (4)
  1. TACROLIMUS SYSTEMIC (TACROLIMUS) FORMULATION UNKNOWN [Suspect]
     Indication: IMMUNOSUPPRESSANT DRUG THERAPY
     Dosage: /D
  2. TACROLIMUS SYSTEMIC (TACROLIMUS) FORMULATION UNKNOWN [Suspect]
     Indication: RENAL TRANSPLANT
     Dosage: /D
  3. AZATHIOPRINE [Concomitant]
  4. PREDNISOLONE [Concomitant]

REACTIONS (9)
  - CAESAREAN SECTION [None]
  - DRUG EXPOSURE DURING PREGNANCY [None]
  - EPISTAXIS [None]
  - KIDNEY TRANSPLANT REJECTION [None]
  - MICROANGIOPATHIC HAEMOLYTIC ANAEMIA [None]
  - PRE-ECLAMPSIA [None]
  - PREGNANCY [None]
  - STILLBIRTH [None]
  - THROMBOTIC THROMBOCYTOPENIC PURPURA [None]
